FAERS Safety Report 5837070-X (Version None)
Quarter: 2008Q3

REPORT INFORMATION
  Report Type: 
  Country: None (occurrence: None)
  Receive Date: 20080807
  Receipt Date: 20070815
  Transmission Date: 20090109
  Serious: No
  Sender: FDA-Public Use
  Company Number: A0669994A

PATIENT
  Age: 26 Year
  Sex: Male

DRUGS (1)
  1. TAGAMET HB 200 [Suspect]
     Dates: start: 20070812, end: 20070812

REACTIONS (4)
  - PRURITUS [None]
  - PYREXIA [None]
  - RASH PAPULAR [None]
  - URTICARIA [None]
